FAERS Safety Report 10203381 (Version 2)
Quarter: 2014Q2

REPORT INFORMATION
  Report Type: Report from Study
  Country: CA (occurrence: CA)
  Receive Date: 20140529
  Receipt Date: 20140529
  Transmission Date: 20141212
  Serious: Yes (Other)
  Sender: FDA-Public Use
  Company Number: CA-ROCHE-1265535

PATIENT
  Age: 41 Year
  Sex: Female
  Weight: 59 kg

DRUGS (13)
  1. RITUXAN [Suspect]
     Indication: RHEUMATOID ARTHRITIS
     Route: 042
     Dates: start: 20130820
  2. ARAVA [Suspect]
     Indication: PRODUCT USED FOR UNKNOWN INDICATION
     Route: 065
  3. CORTISONE [Suspect]
     Indication: PRODUCT USED FOR UNKNOWN INDICATION
     Route: 065
  4. ACETAMINOPHEN [Concomitant]
     Route: 048
     Dates: start: 20130820
  5. METHYLPREDNISOLONE [Concomitant]
     Route: 042
     Dates: start: 20130820
  6. LEFLUNOMIDE [Concomitant]
  7. PREDNISONE [Concomitant]
  8. IBUPROFEN [Concomitant]
  9. COD LIVER [Concomitant]
  10. TYLENOL [Concomitant]
     Dosage: PREMEDICATION
     Route: 048
     Dates: start: 20130820
  11. BENADRYL (CANADA) [Concomitant]
     Route: 048
     Dates: start: 20130820
  12. SULFASALAZINE [Concomitant]
     Route: 065
  13. VITAMIN D3 [Concomitant]

REACTIONS (8)
  - Feeling cold [Unknown]
  - Cough [Not Recovered/Not Resolved]
  - Hypersensitivity [Unknown]
  - Sinusitis [Not Recovered/Not Resolved]
  - Rheumatoid arthritis [Not Recovered/Not Resolved]
  - Weight increased [Unknown]
  - Drug ineffective [Unknown]
  - Drug hypersensitivity [Unknown]
